FAERS Safety Report 10187890 (Version 1)
Quarter: 2014Q2

REPORT INFORMATION
  Report Type: Spontaneous
  Country: US (occurrence: US)
  Receive Date: 20140522
  Receipt Date: 20140522
  Transmission Date: 20141212
  Serious: No
  Sender: FDA-Public Use
  Company Number: US-SANOFI-AVENTIS-2013SA093039

PATIENT
  Age: 52 Year
  Sex: Female
  Weight: 75.98 kg

DRUGS (17)
  1. LANTUS SOLOSTAR [Suspect]
     Indication: TYPE 2 DIABETES MELLITUS
     Dosage: DOSE:10 UNIT(S)
     Route: 051
     Dates: start: 20130909, end: 20130910
  2. SOLOSTAR [Concomitant]
     Dates: start: 20130909, end: 20130910
  3. CELEXA [Concomitant]
     Indication: NERVOUSNESS
     Dosage: 1/2 PILL MORNING
  4. ZOCOR [Concomitant]
  5. ALBUTEROL [Concomitant]
     Indication: RESPIRATORY DISORDER
  6. TRICOR [Concomitant]
     Indication: BLOOD CHOLESTEROL
  7. ZANAFLEX [Concomitant]
     Indication: MIGRAINE
  8. TRAMADOL [Concomitant]
     Indication: MIGRAINE
  9. PROMETHAZINE [Concomitant]
     Indication: PAIN
  10. ZESTRIL [Concomitant]
  11. JANUMET [Concomitant]
     Indication: DIABETES MELLITUS
     Dosage: DOSE: 50/500
  12. PRILOSEC [Concomitant]
  13. DILTIAZEM HYDROCHLORIDE [Concomitant]
     Indication: BLOOD PRESSURE
  14. GLYBURIDE [Concomitant]
     Indication: DIABETES MELLITUS
  15. POTASSIUM [Concomitant]
  16. MAGNESIUM [Concomitant]
     Indication: MUSCLE SPASMS
  17. ALL OTHER THERAPEUTIC PRODUCTS [Concomitant]
     Dosage: EVERYDAY FOR 3 DAYS

REACTIONS (8)
  - Erythema [Unknown]
  - Unevaluable event [Unknown]
  - Haemorrhage [Recovered/Resolved]
  - Pruritus [Recovered/Resolved]
  - Rash generalised [Unknown]
  - Psoriasis [Recovered/Resolved]
  - Unevaluable event [Unknown]
  - Hypersensitivity [Recovered/Resolved]
